FAERS Safety Report 10664809 (Version 1)
Quarter: 2014Q4

REPORT INFORMATION
  Report Type: Spontaneous
  Country: PH (occurrence: PH)
  Receive Date: 20141219
  Receipt Date: 20141219
  Transmission Date: 20150529
  Serious: Yes (Hospitalization)
  Sender: FDA-Public Use
  Company Number: PHHY2014PH163361

PATIENT

DRUGS (3)
  1. LEPONEX [Suspect]
     Active Substance: CLOZAPINE
     Dosage: 250 MG, PER DAY
     Route: 048
     Dates: start: 2014
  2. AMISULPRIDE [Suspect]
     Active Substance: AMISULPRIDE
     Indication: PRODUCT USED FOR UNKNOWN INDICATION
     Route: 065
  3. LEPONEX [Suspect]
     Active Substance: CLOZAPINE
     Indication: SCHIZOPHRENIA
     Dosage: 50 MG, DAILY
     Route: 048
     Dates: start: 2009

REACTIONS (2)
  - Drug ineffective [Unknown]
  - Schizophrenia [Unknown]
